FAERS Safety Report 25607776 (Version 1)
Quarter: 2025Q3

REPORT INFORMATION
  Report Type: Spontaneous
  Country: US (occurrence: US)
  Receive Date: 20250725
  Receipt Date: 20250725
  Transmission Date: 20251020
  Serious: No
  Sender: PADAGIS
  Company Number: US-PADAGIS-2025PAD00859

PATIENT

DRUGS (1)
  1. BUDESONIDE [Suspect]
     Active Substance: BUDESONIDE
     Indication: Autoimmune disorder
     Route: 065

REACTIONS (3)
  - Impaired healing [Unknown]
  - Product use in unapproved indication [Unknown]
  - Product quality issue [Unknown]
